FAERS Safety Report 14066253 (Version 1)
Quarter: 2017Q4

REPORT INFORMATION
  Report Type: Spontaneous
  Country: US (occurrence: US)
  Receive Date: 20171010
  Receipt Date: 20171010
  Transmission Date: 20180321
  Serious: Yes (Life-Threatening, Other)
  Sender: FDA-Public Use
  Company Number: US-ACCORD-059617

PATIENT
  Age: 55 Year
  Sex: Female

DRUGS (2)
  1. METHOTREXATE. [Suspect]
     Active Substance: METHOTREXATE
     Indication: POLYARTHRITIS
     Dosage: DOSE: 17.5 MG WEEKLY ABOUT 4 MONTHS
  2. PREDNISONE. [Suspect]
     Active Substance: PREDNISONE
     Indication: POLYARTHRITIS
     Dosage: LATER TAPERED DOSE

REACTIONS (3)
  - Staphylococcal infection [Unknown]
  - Toxoplasmosis [Recovered/Resolved]
  - Candida infection [Unknown]
